FAERS Safety Report 6054847-9 (Version None)
Quarter: 2009Q1

REPORT INFORMATION
  Report Type: 
  Country: None (occurrence: None)
  Receive Date: 20090128
  Receipt Date: 20090116
  Transmission Date: 20090719
  Serious: Yes (Other)
  Sender: FDA-Public Use
  Company Number: BR-PFIZER INC-2008160718

PATIENT

DRUGS (1)
  1. PROVERA [Suspect]
     Indication: AMENORRHOEA
     Dosage: 10 MG, 4X/DAY
     Route: 048
     Dates: start: 20081221, end: 20081222

REACTIONS (2)
  - BLIGHTED OVUM [None]
  - MEDICATION ERROR [None]
